FAERS Safety Report 6438369-9 (Version None)
Quarter: 2009Q4

REPORT INFORMATION
  Report Type: 
  Country: None (occurrence: None)
  Receive Date: 20091112
  Receipt Date: 20091103
  Transmission Date: 20100525
  Serious: Yes (Hospitalization, Other)
  Sender: FDA-Public Use
  Company Number: ES-ABBOTT-09P-144-0606592-00

PATIENT
  Age: 12 Year
  Sex: Male

DRUGS (3)
  1. HUMIRA [Suspect]
     Indication: CROHN'S DISEASE
     Route: 058
     Dates: start: 20090501, end: 20090901
  2. AZATIOPRINE [Concomitant]
     Indication: CROHN'S DISEASE
     Route: 048
  3. MESALAZINA [Concomitant]
     Indication: CROHN'S DISEASE
     Route: 048

REACTIONS (6)
  - ABDOMINAL PAIN [None]
  - CHILLS [None]
  - CONFUSIONAL STATE [None]
  - DIPLOPIA [None]
  - HEADACHE [None]
  - MALAISE [None]
